FAERS Safety Report 22277655 (Version 1)
Quarter: 2023Q2

REPORT INFORMATION
  Report Type: Spontaneous
  Country: AU (occurrence: AU)
  Receive Date: 20230503
  Receipt Date: 20230503
  Transmission Date: 20230722
  Serious: Yes (Other)
  Sender: FDA-Public Use
  Company Number: None

PATIENT
  Age: 4 Decade
  Sex: Male

DRUGS (4)
  1. LAMOTRIGINE [Suspect]
     Active Substance: LAMOTRIGINE
     Indication: Epilepsy
     Dosage: UP TITRATED TO 50 MG ONCE A DAY
  2. LAMOTRIGINE [Suspect]
     Active Substance: LAMOTRIGINE
     Indication: Generalised tonic-clonic seizure
     Dosage: 50 MG,  ONCE PER DAY (UP TITRATED TO 50 MG ONCE A DAY)
  3. VALPROATE SODIUM [Concomitant]
     Active Substance: VALPROATE SODIUM
     Indication: Generalised tonic-clonic seizure
     Dosage: 500 MG, 2 TIMES PER DAY
  4. VALPROATE SODIUM [Concomitant]
     Active Substance: VALPROATE SODIUM
     Indication: Epilepsy

REACTIONS (3)
  - Pain in extremity [Recovered/Resolved]
  - Skin hyperpigmentation [Recovered/Resolved]
  - Swelling [Recovered/Resolved]
